FAERS Safety Report 15190616 (Version 1)
Quarter: 2018Q3

REPORT INFORMATION
  Report Type: Spontaneous
  Country: US (occurrence: US)
  Receive Date: 20180724
  Receipt Date: 20180724
  Transmission Date: 20181010
  Serious: No
  Sender: FDA-Public Use
  Company Number: US-ASTRAZENECA-2018SE86034

PATIENT
  Age: 50 Year
  Sex: Female

DRUGS (1)
  1. FASENRA [Suspect]
     Active Substance: BENRALIZUMAB
     Indication: ASTHMA
     Dosage: FIRST THREE DOSES EVERY 4 WEEKS AND THEN 8 WEEKS THEREAFTER
     Route: 058
     Dates: start: 20180628

REACTIONS (3)
  - Pruritus [Unknown]
  - Throat irritation [Unknown]
  - Dysphagia [Unknown]

NARRATIVE: CASE EVENT DATE: 20180628
